FAERS Safety Report 14365878 (Version 1)
Quarter: 2018Q1

REPORT INFORMATION
  Report Type: Report from Study
  Country: ES (occurrence: ES)
  Receive Date: 20180109
  Receipt Date: 20180109
  Transmission Date: 20180509
  Serious: Yes (Death)
  Sender: FDA-Public Use
  Company Number: ES-AXELLIA-001274

PATIENT

DRUGS (3)
  1. POSACONAZOLE [Suspect]
     Active Substance: POSACONAZOLE
     Indication: PRODUCT USED FOR UNKNOWN INDICATION
  2. ITRACONAZOLE. [Suspect]
     Active Substance: ITRACONAZOLE
     Indication: PRODUCT USED FOR UNKNOWN INDICATION
  3. VORICONAZOLE. [Suspect]
     Active Substance: VORICONAZOLE
     Indication: PRODUCT USED FOR UNKNOWN INDICATION

REACTIONS (1)
  - Drug resistance [Fatal]
